FAERS Safety Report 17250890 (Version 1)
Quarter: 2020Q1

REPORT INFORMATION
  Report Type: Other
  Country: CA (occurrence: CA)
  Receive Date: 20200109
  Receipt Date: 20200109
  Transmission Date: 20200409
  Serious: Yes (Hospitalization, Other)
  Sender: FDA-Public Use
  Company Number: CA-APOTEX-2020AP005085

PATIENT
  Age: 31 Year
  Sex: Male

DRUGS (1)
  1. PAXIL [Suspect]
     Active Substance: PAROXETINE HYDROCHLORIDE
     Indication: SOCIAL ANXIETY DISORDER
     Dosage: 20 MG, QD
     Route: 048

REACTIONS (22)
  - Influenza like illness [Recovering/Resolving]
  - Depression [Recovering/Resolving]
  - Alopecia areata [Recovering/Resolving]
  - Insomnia [Recovering/Resolving]
  - Nausea [Recovering/Resolving]
  - Binge drinking [Recovering/Resolving]
  - Gastrointestinal disorder [Recovering/Resolving]
  - Fatigue [Recovering/Resolving]
  - Paraesthesia [Recovering/Resolving]
  - Tinnitus [Recovering/Resolving]
  - Vertigo [Recovering/Resolving]
  - Cold sweat [Recovering/Resolving]
  - Myalgia [Recovering/Resolving]
  - Dizziness [Recovering/Resolving]
  - Drug withdrawal headache [Recovering/Resolving]
  - Anxiety [Recovering/Resolving]
  - Withdrawal syndrome [Recovering/Resolving]
  - Abnormal dreams [Recovering/Resolving]
  - Alopecia universalis [Recovering/Resolving]
  - Irritability [Recovering/Resolving]
  - Chills [Recovering/Resolving]
  - Erythema multiforme [Recovering/Resolving]
